FAERS Safety Report 21578516 (Version 1)
Quarter: 2022Q4

REPORT INFORMATION
  Report Type: Spontaneous
  Country: FR (occurrence: FR)
  Receive Date: 20221110
  Receipt Date: 20221110
  Transmission Date: 20230113
  Serious: Yes (Hospitalization)
  Sender: FDA-Public Use
  Company Number: None

PATIENT
  Age: 38 Year
  Sex: Male
  Weight: 100 kg

DRUGS (5)
  1. ZOLPIDEM [Suspect]
     Active Substance: ZOLPIDEM TARTRATE
     Indication: Insomnia
     Dosage: THERAPY START DATE :  ASKED BUT UNKNOWN, UNIT DOSE : 10 MG, FREQUENCY TIME : 1 DAYS
     Route: 065
  2. HALDOL [Suspect]
     Active Substance: HALOPERIDOL
     Indication: Bipolar disorder
     Dosage: UNIT STRENGTH: 1 MG, THERAPY START DATE :  ASKED BUT UNKNOWN,  UNIT DOSE : 2 MG,FREQUENCY TIME : 1 D
     Route: 065
  3. TROPATEPINE HYDROCHLORIDE [Suspect]
     Active Substance: TROPATEPINE HYDROCHLORIDE
     Indication: Parkinsonism
     Dosage: UNIT DOSE AND UNIT STRENGTH  : 10 MG,THERAPY START DATE :  ASKED BUT UNKNOWN, FREQUENCY TIME : 1 DAY
     Route: 065
  4. QUETIAPINE FUMARATE [Suspect]
     Active Substance: QUETIAPINE FUMARATE
     Indication: Bipolar disorder
     Dosage: STRENGTH : 300 MG, THERAPY START DATE :  ASKED BUT UNKNOWN,  UNIT DOSE : 600 MG, FREQUENCY TIME : 1
     Route: 065
  5. RISPERDAL CONSTA [Suspect]
     Active Substance: RISPERIDONE
     Indication: Bipolar disorder
     Dosage: 50 MG/2 ML POWDER AND SOLVENT FOR PROLONGED-RELEASE SUSPENSION FOR INJECTION IN PRE-FILLED SYRINGE,T
     Route: 065

REACTIONS (1)
  - Granulomatous liver disease [Not Recovered/Not Resolved]

NARRATIVE: CASE EVENT DATE: 20221017
